FAERS Safety Report 6615146-7 (Version None)
Quarter: 2010Q1

REPORT INFORMATION
  Report Type: 
  Country: None (occurrence: None)
  Receive Date: 20100305
  Receipt Date: 20100226
  Transmission Date: 20100710
  Serious: Yes (Hospitalization)
  Sender: FDA-Public Use
  Company Number: JP-ASTRAZENECA-2010SE08850

PATIENT
  Age: 70 Year
  Sex: Female

DRUGS (10)
  1. OMEPRAL [Suspect]
     Indication: HELICOBACTER INFECTION
     Route: 048
     Dates: start: 20090221, end: 20090227
  2. CLARITH [Suspect]
     Indication: HELICOBACTER INFECTION
     Route: 048
     Dates: start: 20090221, end: 20090227
  3. PASETOCIN [Suspect]
     Indication: HELICOBACTER INFECTION
     Route: 048
     Dates: start: 20090221, end: 20090227
  4. DOVONEX [Concomitant]
     Route: 003
  5. NERISONA [Concomitant]
     Route: 003
  6. METHADERM [Concomitant]
     Route: 003
  7. SAHNE [Concomitant]
     Route: 003
  8. ASPIRIN [Concomitant]
     Route: 048
  9. AMLODIPINE [Concomitant]
     Route: 048
  10. BLOPRESS [Concomitant]
     Route: 048

REACTIONS (1)
  - ECZEMA [None]
